FAERS Safety Report 21720511 (Version 2)
Quarter: 2022Q4

REPORT INFORMATION
  Report Type: Spontaneous
  Country: AT (occurrence: AT)
  Receive Date: 20221213
  Receipt Date: 20221229
  Transmission Date: 20230113
  Serious: Yes (Hospitalization, Other)
  Sender: FDA-Public Use
  Company Number: AT-002147023-NVSC2022AT286131

PATIENT
  Sex: Female

DRUGS (10)
  1. PIQRAY [Suspect]
     Active Substance: ALPELISIB
     Indication: HER2 positive breast cancer
     Dosage: 300 MG, QD
     Route: 048
     Dates: start: 20221115
  2. PIQRAY [Suspect]
     Active Substance: ALPELISIB
     Dosage: 250 MG
     Route: 048
     Dates: end: 20221209
  3. EUTHYROX [Concomitant]
     Active Substance: LEVOTHYROXINE SODIUM
     Indication: Product used for unknown indication
     Dosage: 150 UG
     Route: 048
  4. ACETAMINOPHEN [Concomitant]
     Active Substance: ACETAMINOPHEN
     Indication: Product used for unknown indication
     Dosage: 500 MG, TID (1-1-1) (TAKEN AGAIN AND AGAIN)
     Route: 048
  5. METAMIZOLE [Concomitant]
     Active Substance: METAMIZOLE
     Indication: Pain
     Dosage: 500 MG, TID
     Route: 048
  6. PANTOPRAZOLE SODIUM [Concomitant]
     Active Substance: PANTOPRAZOLE SODIUM
     Indication: Product used for unknown indication
     Dosage: 40 MG
     Route: 048
  7. LYRICA [Concomitant]
     Active Substance: PREGABALIN
     Indication: Product used for unknown indication
     Dosage: 25 MG, BID (15 DEC)
     Route: 065
  8. FULVESTRANT [Concomitant]
     Active Substance: FULVESTRANT
     Indication: Product used for unknown indication
     Dosage: 500 MG, EVERY 28 DAYS
     Route: 030
     Dates: start: 20221114
  9. ZOLADEX [Concomitant]
     Active Substance: GOSERELIN ACETATE
     Indication: Product used for unknown indication
     Dosage: 3.6 MG, EVERY 28 DAYS
     Route: 030
     Dates: start: 20210127
  10. DENOSUMAB [Concomitant]
     Active Substance: DENOSUMAB
     Indication: Product used for unknown indication
     Dosage: 120 UG, EVERY 28 DAYS
     Route: 058
     Dates: start: 20210127

REACTIONS (3)
  - Rash maculo-papular [Recovered/Resolved]
  - Skin reaction [Unknown]
  - Off label use [Unknown]

NARRATIVE: CASE EVENT DATE: 20221115
